FAERS Safety Report 6909202-3 (Version None)
Quarter: 2010Q3

REPORT INFORMATION
  Report Type: 
  Country: None (occurrence: None)
  Receive Date: 20100716
  Receipt Date: 20090821
  Transmission Date: 20110219
  Serious: Yes (Other)
  Sender: FDA-Public Use
  Company Number: 2006004277

PATIENT
  Age: 81 Year
  Sex: Female
  Weight: 54 kg

DRUGS (7)
  1. CELEBREX [Suspect]
     Indication: ARTHRITIS
     Dosage: 200 MG, 1X/DAY, ORAL
     Route: 048
     Dates: end: 20090703
  2. BEXTRA [Suspect]
     Indication: ARTHRITIS
     Dates: start: 20021001
  3. FOSAMAX [Concomitant]
  4. TRIAMETERENE (TRIATERENE) [Concomitant]
  5. PAXIL [Concomitant]
  6. LEVOTHROID [Concomitant]
  7. THYROID TAB [Concomitant]

REACTIONS (2)
  - HYPERTENSION [None]
  - PRURITUS [None]
